FAERS Safety Report 5366473-5 (Version None)
Quarter: 2007Q2

REPORT INFORMATION
  Report Type: 
  Country: None (occurrence: None)
  Receive Date: 20070622
  Receipt Date: 20070611
  Transmission Date: 20071010
  Serious: Yes (Other)
  Sender: FDA-Public Use
  Company Number: US-JNJFOC-20070602900

PATIENT
  Age: 50 Year
  Sex: Female

DRUGS (2)
  1. LEVAQUIN [Suspect]
     Indication: CELLULITIS
     Route: 048
  2. ULTRAM [Interacting]
     Indication: PAIN
     Route: 048

REACTIONS (5)
  - DRUG INTERACTION [None]
  - DRY MOUTH [None]
  - HALLUCINATION, VISUAL [None]
  - HEADACHE [None]
  - PSYCHOTIC DISORDER [None]
